FAERS Safety Report 5167475-4 (Version None)
Quarter: 2006Q4

REPORT INFORMATION
  Report Type: 
  Country: None (occurrence: None)
  Receive Date: 20061130
  Receipt Date: 20061115
  Transmission Date: 20070319
  Serious: Yes (Other)
  Sender: FDA-Public Use
  Company Number: 8021

PATIENT
  Age: 29 Year
  Sex: Female

DRUGS (4)
  1. ATRACURIUM BESYLATE [Suspect]
     Indication: ANAESTHESIA
     Dosage: 60 MG
  2. FENTANYL [Concomitant]
  3. PROPOFOL [Concomitant]
  4. NITROUS OXIDE W/ OXYGEN [Concomitant]

REACTIONS (2)
  - DRUG EFFECT DECREASED [None]
  - MUSCLE SPASMS [None]
